FAERS Safety Report 23551551 (Version 1)
Quarter: 2024Q1

REPORT INFORMATION
  Report Type: Spontaneous
  Country: US (occurrence: US)
  Receive Date: 20240222
  Receipt Date: 20240222
  Transmission Date: 20240409
  Serious: No
  Sender: FDA-Public Use
  Company Number: US-009507513-2401USA016756

PATIENT
  Age: 47 Year
  Sex: Male

DRUGS (4)
  1. KEYTRUDA [Suspect]
     Active Substance: PEMBROLIZUMAB
     Indication: Astrocytoma malignant
     Dosage: UNK, EVERY 3 WEEKS (Q3W), FOR 24 CYCLES
  2. TEMODAR [Suspect]
     Active Substance: TEMOZOLOMIDE
     Indication: Astrocytoma malignant
     Dosage: UNK, DAILY (QD)
     Route: 048
  3. DISULFIRAM [Suspect]
     Active Substance: DISULFIRAM
     Indication: Astrocytoma malignant
     Dosage: UNK
  4. COPPER GLUCONATE [Suspect]
     Active Substance: COPPER GLUCONATE
     Indication: Astrocytoma malignant
     Dosage: UNK

REACTIONS (2)
  - Product use in unapproved indication [Unknown]
  - Product use issue [Unknown]
